FAERS Safety Report 10031603 (Version 1)
Quarter: 2014Q1

REPORT INFORMATION
  Report Type: Spontaneous
  Country: US (occurrence: US)
  Receive Date: 20140324
  Receipt Date: 20140324
  Transmission Date: 20141002
  Serious: No
  Sender: FDA-Public Use
  Company Number: US-PFIZER INC-2014079841

PATIENT
  Age: 65 Year
  Sex: Female

DRUGS (5)
  1. CELEBREX [Suspect]
     Dosage: UNK
  2. MOBIC [Suspect]
     Dosage: UNK
  3. ASA [Suspect]
     Dosage: UNK
  4. LODRANE [Suspect]
     Dosage: UNK
  5. OXYTROL [Suspect]
     Dosage: UNK

REACTIONS (1)
  - Drug hypersensitivity [Unknown]
